FAERS Safety Report 10912944 (Version 2)
Quarter: 2015Q2

REPORT INFORMATION
  Report Type: Report from Study
  Country: BR (occurrence: BR)
  Receive Date: 20150313
  Receipt Date: 20150403
  Transmission Date: 20150821
  Serious: Yes (Disabling)
  Sender: FDA-Public Use
  Company Number: BR-ABBVIE-15K-020-1357534-00

PATIENT
  Age: 47 Year
  Sex: Female
  Weight: 63 kg

DRUGS (7)
  1. BIOFENAC [Concomitant]
     Active Substance: ACECLOFENAC
     Indication: PAIN
     Route: 048
  2. HUMIRA [Suspect]
     Active Substance: ADALIMUMAB
     Route: 058
     Dates: start: 2015
  3. CERAZETTE [Concomitant]
     Active Substance: DESOGESTREL
     Indication: ARRHYTHMIA
     Route: 048
     Dates: start: 2006
  4. SELOZOK [Concomitant]
     Active Substance: METOPROLOL SUCCINATE
     Indication: CARDIAC DISORDER
     Route: 048
     Dates: start: 2006
  5. HUMIRA [Suspect]
     Active Substance: ADALIMUMAB
     Indication: RHEUMATOID ARTHRITIS
     Route: 058
     Dates: start: 20110109, end: 20150119
  6. PREDNISONE. [Concomitant]
     Active Substance: PREDNISONE
     Indication: ARTHRITIS
     Route: 048
     Dates: start: 2012
  7. CERAZETTE [Concomitant]
     Active Substance: DESOGESTREL
     Indication: FATIGUE

REACTIONS (8)
  - Lower extremity mass [Not Recovered/Not Resolved]
  - Pain in extremity [Not Recovered/Not Resolved]
  - Infestation [Unknown]
  - Pyrexia [Not Recovered/Not Resolved]
  - Peripheral swelling [Not Recovered/Not Resolved]
  - Wound [Unknown]
  - Abasia [Not Recovered/Not Resolved]
  - Animal scratch [Unknown]

NARRATIVE: CASE EVENT DATE: 2015
